FAERS Safety Report 16354929 (Version 1)
Quarter: 2019Q2

REPORT INFORMATION
  Report Type: Spontaneous
  Country: RO (occurrence: RO)
  Receive Date: 20190524
  Receipt Date: 20190524
  Transmission Date: 20190711
  Serious: Yes (Death, Other)
  Sender: FDA-Public Use
  Company Number: RO-ASTRAZENECA-2019SE77205

PATIENT
  Age: 54 Year
  Sex: Male

DRUGS (6)
  1. PREDUCTAL [Concomitant]
     Active Substance: TRIMETAZIDINE DIHYDROCHLORIDE
  2. CONCOR [Concomitant]
     Active Substance: BISOPROLOL FUMARATE
  3. BRILIQUE [Suspect]
     Active Substance: TICAGRELOR
     Indication: STENT PLACEMENT
     Route: 048
  4. SORTIS [Concomitant]
     Active Substance: ATORVASTATIN
  5. BRILIQUE [Suspect]
     Active Substance: TICAGRELOR
     Indication: ANGINA UNSTABLE
     Route: 048
  6. PRESTARIUM [Concomitant]
     Active Substance: PERINDOPRIL

REACTIONS (2)
  - Myocardial infarction [Fatal]
  - Mallory-Weiss syndrome [Unknown]
